FAERS Safety Report 15076500 (Version 5)
Quarter: 2019Q3

REPORT INFORMATION
  Report Type: Report from Study
  Country: US (occurrence: US)
  Receive Date: 20180627
  Receipt Date: 20190722
  Transmission Date: 20191004
  Serious: Yes (Other)
  Sender: FDA-Public Use
  Company Number: US-JNJFOC-20180400161

PATIENT
  Age: 65 Year
  Sex: Male
  Weight: 119 kg

DRUGS (66)
  1. XARELTO [Suspect]
     Active Substance: RIVAROXABAN
     Route: 048
     Dates: start: 20180503
  2. OXYBUTYNIN CHLORIDE. [Concomitant]
     Active Substance: OXYBUTYNIN CHLORIDE
     Route: 048
     Dates: start: 20180503
  3. FUROSEMIDE. [Concomitant]
     Active Substance: FUROSEMIDE
     Dosage: 20 MG, AS DIRECTED
     Route: 048
     Dates: start: 20180510
  4. FUROSEMIDE. [Concomitant]
     Active Substance: FUROSEMIDE
     Dosage: 20 MG, AS DIRECTED
     Route: 048
     Dates: start: 20180524
  5. LIPITOR [Concomitant]
     Active Substance: ATORVASTATIN CALCIUM
     Route: 048
     Dates: start: 20180517
  6. PERCOCET [Concomitant]
     Active Substance: ACETAMINOPHEN\OXYCODONE HYDROCHLORIDE
     Indication: PAIN
     Dosage: 1 TABLET Q4-6H PRN
     Route: 048
     Dates: start: 20180503
  7. PERCOCET [Concomitant]
     Active Substance: ACETAMINOPHEN\OXYCODONE HYDROCHLORIDE
     Dosage: 1 TABLET Q4-6H PRN
     Route: 048
     Dates: start: 20180510
  8. LISINOPRIL. [Concomitant]
     Active Substance: LISINOPRIL
     Dosage: 20 MG, AS DIRECTED
     Route: 048
     Dates: start: 20180503
  9. LISINOPRIL. [Concomitant]
     Active Substance: LISINOPRIL
     Route: 048
     Dates: start: 20180531
  10. FENTANYL. [Concomitant]
     Active Substance: FENTANYL
     Dosage: 1 PATCH TOPICAL Q72H
     Route: 062
     Dates: start: 20180510
  11. FENTANYL. [Concomitant]
     Active Substance: FENTANYL
     Dosage: 1 PATCH TOPICAL Q72H
     Route: 062
     Dates: start: 20180531
  12. IMBRUVICA [Suspect]
     Active Substance: IBRUTINIB
     Route: 048
     Dates: start: 20180208, end: 20180504
  13. XARELTO [Suspect]
     Active Substance: RIVAROXABAN
     Indication: ATRIAL FIBRILLATION
     Route: 048
     Dates: start: 2008
  14. XARELTO [Suspect]
     Active Substance: RIVAROXABAN
     Route: 048
     Dates: start: 20180607
  15. VALACYCLOVIR HCL [Concomitant]
     Active Substance: VALACYCLOVIR HYDROCHLORIDE
     Route: 048
     Dates: start: 20180517
  16. AMLODIPINE BESYLATE. [Concomitant]
     Active Substance: AMLODIPINE BESYLATE
     Dosage: TAKING HALF A PILL NOW
     Route: 048
     Dates: start: 20180524
  17. OXYBUTYNIN CHLORIDE. [Concomitant]
     Active Substance: OXYBUTYNIN CHLORIDE
     Route: 048
     Dates: start: 20180524
  18. FUROSEMIDE. [Concomitant]
     Active Substance: FUROSEMIDE
     Dosage: 20 MG, AS DIRECTED
     Route: 048
     Dates: start: 20180517
  19. CHLORAMBUCIL [Concomitant]
     Active Substance: CHLORAMBUCIL
     Dosage: TAKE 8 TABLETS DAY 1 AND DAY 15
     Route: 048
     Dates: start: 20180510
  20. CHLORAMBUCIL [Concomitant]
     Active Substance: CHLORAMBUCIL
     Dosage: TAKE 8 TABLETS DAY 1 AND DAY 15
     Route: 048
     Dates: start: 20180524
  21. PERCOCET [Concomitant]
     Active Substance: ACETAMINOPHEN\OXYCODONE HYDROCHLORIDE
     Dosage: 1 TABLET Q4-6H PRN
     Route: 048
     Dates: start: 20180531
  22. FENTANYL. [Concomitant]
     Active Substance: FENTANYL
     Dosage: 1 PATCH TOPICAL Q72H
     Route: 062
     Dates: start: 20180607
  23. IMBRUVICA [Suspect]
     Active Substance: IBRUTINIB
     Indication: CHRONIC LYMPHOCYTIC LEUKAEMIA
     Dosage: 420 MG, QD
     Route: 048
  24. AMLODIPINE BESYLATE. [Concomitant]
     Active Substance: AMLODIPINE BESYLATE
     Dosage: TAKING HALF A PILL NOW
     Route: 048
     Dates: start: 20180531
  25. FUROSEMIDE. [Concomitant]
     Active Substance: FUROSEMIDE
     Dosage: 20 MG, AS DIRECTED
     Route: 048
     Dates: start: 20180503
  26. FUROSEMIDE. [Concomitant]
     Active Substance: FUROSEMIDE
     Dosage: 20 MG, AS DIRECTED
     Route: 048
     Dates: start: 20180531
  27. LIPITOR [Concomitant]
     Active Substance: ATORVASTATIN CALCIUM
     Route: 048
     Dates: start: 20180531
  28. LISINOPRIL. [Concomitant]
     Active Substance: LISINOPRIL
     Route: 048
     Dates: start: 20180517
  29. FENTANYL. [Concomitant]
     Active Substance: FENTANYL
     Dosage: 1 PATCH TOPICAL Q72H
     Route: 062
     Dates: start: 20180524
  30. XARELTO [Suspect]
     Active Substance: RIVAROXABAN
     Route: 048
     Dates: start: 2018
  31. VALACYCLOVIR HCL [Concomitant]
     Active Substance: VALACYCLOVIR HYDROCHLORIDE
     Route: 048
     Dates: start: 20180607
  32. CHLORAMBUCIL [Concomitant]
     Active Substance: CHLORAMBUCIL
     Dosage: TAKE 8 TABLETS DAY 1 AND DAY 15
     Route: 048
     Dates: start: 20180607
  33. LIPITOR [Concomitant]
     Active Substance: ATORVASTATIN CALCIUM
     Route: 048
     Dates: start: 20180510
  34. LIPITOR [Concomitant]
     Active Substance: ATORVASTATIN CALCIUM
     Route: 048
     Dates: start: 20180524
  35. LISINOPRIL. [Concomitant]
     Active Substance: LISINOPRIL
     Route: 048
     Dates: start: 20180510
  36. LISINOPRIL. [Concomitant]
     Active Substance: LISINOPRIL
     Route: 048
     Dates: start: 20180607
  37. IMBRUVICA [Suspect]
     Active Substance: IBRUTINIB
     Route: 048
     Dates: start: 201802, end: 201805
  38. IMBRUVICA [Suspect]
     Active Substance: IBRUTINIB
     Dosage: 140 MG, QD
     Route: 048
     Dates: start: 20180209
  39. XARELTO [Suspect]
     Active Substance: RIVAROXABAN
     Route: 048
     Dates: start: 20180517
  40. XARELTO [Suspect]
     Active Substance: RIVAROXABAN
     Route: 048
     Dates: start: 20180524
  41. VALACYCLOVIR HCL [Concomitant]
     Active Substance: VALACYCLOVIR HYDROCHLORIDE
     Route: 048
     Dates: start: 20180524
  42. OXYBUTYNIN CHLORIDE. [Concomitant]
     Active Substance: OXYBUTYNIN CHLORIDE
     Route: 048
     Dates: start: 20180607
  43. CHLORAMBUCIL [Concomitant]
     Active Substance: CHLORAMBUCIL
     Indication: LEUKAEMIA
     Dosage: TAKE 8 TABLETS DAY 1 AND DAY 15
     Route: 048
     Dates: start: 20180503
  44. CHLORAMBUCIL [Concomitant]
     Active Substance: CHLORAMBUCIL
     Dosage: TAKE 8 TABLETS DAY 1 AND DAY 15
     Route: 048
     Dates: start: 20180517
  45. LIPITOR [Concomitant]
     Active Substance: ATORVASTATIN CALCIUM
     Route: 048
     Dates: start: 20180503
  46. PERCOCET [Concomitant]
     Active Substance: ACETAMINOPHEN\OXYCODONE HYDROCHLORIDE
     Dosage: 1 TABLET Q4-6H PRN
     Route: 048
     Dates: start: 20180524
  47. LISINOPRIL. [Concomitant]
     Active Substance: LISINOPRIL
     Route: 048
     Dates: start: 20180524
  48. IMBRUVICA [Suspect]
     Active Substance: IBRUTINIB
     Route: 048
     Dates: start: 20180518
  49. VALACYCLOVIR HCL [Concomitant]
     Active Substance: VALACYCLOVIR HYDROCHLORIDE
     Route: 048
     Dates: start: 20180510
  50. AMLODIPINE BESYLATE. [Concomitant]
     Active Substance: AMLODIPINE BESYLATE
     Dosage: TAKING HALF A PILL NOW
     Route: 048
     Dates: start: 20180503
  51. AMLODIPINE BESYLATE. [Concomitant]
     Active Substance: AMLODIPINE BESYLATE
     Dosage: TAKING HALF A PILL NOW
     Route: 048
     Dates: start: 20180510
  52. CHLORAMBUCIL [Concomitant]
     Active Substance: CHLORAMBUCIL
     Dosage: TAKE 8 TABLETS DAY 1 AND DAY 15
     Route: 048
     Dates: start: 20180531
  53. PERCOCET [Concomitant]
     Active Substance: ACETAMINOPHEN\OXYCODONE HYDROCHLORIDE
     Dosage: 1 TABLET Q4-6H PRN
     Route: 048
     Dates: start: 20180517
  54. FENTANYL. [Concomitant]
     Active Substance: FENTANYL
     Dosage: 1 PATCH TOPICAL Q72H
     Route: 062
     Dates: start: 20180503
  55. FENTANYL. [Concomitant]
     Active Substance: FENTANYL
     Dosage: 1 PATCH TOPICAL Q72H
     Route: 062
     Dates: start: 20180517
  56. XARELTO [Suspect]
     Active Substance: RIVAROXABAN
     Route: 048
     Dates: start: 20180510
  57. OXYBUTYNIN CHLORIDE. [Concomitant]
     Active Substance: OXYBUTYNIN CHLORIDE
     Route: 048
     Dates: start: 20180510
  58. OXYBUTYNIN CHLORIDE. [Concomitant]
     Active Substance: OXYBUTYNIN CHLORIDE
     Route: 048
     Dates: start: 20180517
  59. OXYBUTYNIN CHLORIDE. [Concomitant]
     Active Substance: OXYBUTYNIN CHLORIDE
     Route: 048
     Dates: start: 20180531
  60. PERCOCET [Concomitant]
     Active Substance: ACETAMINOPHEN\OXYCODONE HYDROCHLORIDE
     Dosage: 1 TABLET Q4-6H PRN
     Route: 048
     Dates: start: 20180607
  61. XARELTO [Suspect]
     Active Substance: RIVAROXABAN
     Route: 048
     Dates: start: 20180531
  62. VALACYCLOVIR HCL [Concomitant]
     Active Substance: VALACYCLOVIR HYDROCHLORIDE
     Route: 048
     Dates: start: 20140721, end: 20180503
  63. AMLODIPINE BESYLATE. [Concomitant]
     Active Substance: AMLODIPINE BESYLATE
     Dosage: TAKING HALF A PILL NOW
     Route: 048
     Dates: start: 20180517
  64. AMLODIPINE BESYLATE. [Concomitant]
     Active Substance: AMLODIPINE BESYLATE
     Route: 048
     Dates: start: 20180607
  65. FUROSEMIDE. [Concomitant]
     Active Substance: FUROSEMIDE
     Dosage: 20 MG, AS DIRECTED
     Route: 048
     Dates: start: 20180607
  66. LIPITOR [Concomitant]
     Active Substance: ATORVASTATIN CALCIUM
     Route: 048
     Dates: start: 20180607

REACTIONS (16)
  - Cystitis haemorrhagic [Unknown]
  - Incorrect dose administered [Unknown]
  - Oral herpes [Recovered/Resolved]
  - Endovenous ablation [Unknown]
  - Off label use [Unknown]
  - Hernia [Recovered/Resolved]
  - Dyspnoea exertional [Not Recovered/Not Resolved]
  - Fatigue [Unknown]
  - Blood glucose increased [Unknown]
  - Blood potassium decreased [Unknown]
  - Joint swelling [Not Recovered/Not Resolved]
  - Skin fissures [Recovering/Resolving]
  - Peripheral swelling [Recovering/Resolving]
  - Epistaxis [Recovered/Resolved]
  - Dry skin [Recovering/Resolving]
  - Abdominal distension [Not Recovered/Not Resolved]

NARRATIVE: CASE EVENT DATE: 20180209
